FAERS Safety Report 20846115 (Version 1)
Quarter: 2022Q2

REPORT INFORMATION
  Report Type: Spontaneous
  Country: US (occurrence: US)
  Receive Date: 20220518
  Receipt Date: 20220518
  Transmission Date: 20220721
  Serious: No
  Sender: FDA-Public Use
  Company Number: US-PFIZER INC-202200185277

PATIENT
  Age: 41 Year
  Sex: Female
  Weight: 68.04 kg

DRUGS (1)
  1. LIOTHYRONINE SODIUM [Suspect]
     Active Substance: LIOTHYRONINE SODIUM
     Indication: Hypothyroidism
     Dosage: 5 UG, 2X/DAY
     Route: 048
     Dates: start: 20211215

REACTIONS (9)
  - Therapeutic response changed [Unknown]
  - Drug ineffective [Not Recovered/Not Resolved]
  - Dry skin [Unknown]
  - Constipation [Unknown]
  - Alopecia [Unknown]
  - Feeling abnormal [Unknown]
  - Somnolence [Unknown]
  - Nail disorder [Unknown]
  - Apathy [Unknown]

NARRATIVE: CASE EVENT DATE: 20211201
